FAERS Safety Report 7743438-7 (Version None)
Quarter: 2011Q3

REPORT INFORMATION
  Report Type: 
  Country: None (occurrence: None)
  Receive Date: 20110912
  Receipt Date: 20110902
  Transmission Date: 20111222
  Serious: Yes (Death, Other)
  Sender: FDA-Public Use
  Company Number: PHHY2011MX78532

PATIENT
  Age: 27 Year
  Sex: Male

DRUGS (1)
  1. EXFORGE [Suspect]
     Indication: HYPERTENSION
     Dosage: 1 DF, DAILY (160 MG VALS AND 5 MG AMLO)
     Dates: start: 20110701

REACTIONS (3)
  - PROCEDURAL COMPLICATION [None]
  - HAEMORRHAGE [None]
  - DEATH [None]
